FAERS Safety Report 6137989-9 (Version None)
Quarter: 2009Q1

REPORT INFORMATION
  Report Type: 
  Country: None (occurrence: None)
  Receive Date: 20090327
  Receipt Date: 20090327
  Transmission Date: 20090719
  Serious: Yes (Other)
  Sender: FDA-Public Use
  Company Number: None

PATIENT
  Age: 32 Year
  Sex: Female
  Weight: 54.4316 kg

DRUGS (2)
  1. KEPPRA [Suspect]
     Indication: CONVULSION
     Dosage: 500 MG 1 IN AM 1 IN PM ORAL
     Route: 048
     Dates: start: 20090303, end: 20090316
  2. DILANTIN [Concomitant]

REACTIONS (8)
  - ABNORMAL BEHAVIOUR [None]
  - AGGRESSION [None]
  - CONTUSION [None]
  - CRYING [None]
  - HOMICIDAL IDEATION [None]
  - MOOD SWINGS [None]
  - SUICIDE ATTEMPT [None]
  - THINKING ABNORMAL [None]
